FAERS Safety Report 15549198 (Version 3)
Quarter: 2018Q4

REPORT INFORMATION
  Report Type: Report from Study
  Country: GB (occurrence: GB)
  Receive Date: 20181025
  Receipt Date: 20181122
  Transmission Date: 20190205
  Serious: Yes (Other)
  Sender: FDA-Public Use
  Company Number: GB-IPSEN BIOPHARMACEUTICALS, INC.-2018-15995

PATIENT
  Age: 76 Year
  Sex: Female

DRUGS (1)
  1. SOMATULINE AUTOGEL 120MG [Suspect]
     Active Substance: LANREOTIDE ACETATE
     Indication: PRODUCT USED FOR UNKNOWN INDICATION
     Route: 058
     Dates: start: 20180810

REACTIONS (18)
  - Injection site mass [Unknown]
  - Musculoskeletal chest pain [Unknown]
  - Abdominal pain [Recovered/Resolved]
  - Steatorrhoea [Unknown]
  - Diarrhoea [Unknown]
  - Injection site pain [Unknown]
  - Injection site haemorrhage [Unknown]
  - Diarrhoea [Not Recovered/Not Resolved]
  - Injection site haemorrhage [Recovered/Resolved]
  - Injection site erythema [Unknown]
  - Muscle spasms [Not Recovered/Not Resolved]
  - Headache [Unknown]
  - Syncope [Unknown]
  - Flatulence [Not Recovered/Not Resolved]
  - Blood pressure decreased [Unknown]
  - Pain [Unknown]
  - Hot flush [Unknown]
  - Vomiting [Unknown]

NARRATIVE: CASE EVENT DATE: 201809
